FAERS Safety Report 13677252 (Version 1)
Quarter: 2017Q2

REPORT INFORMATION
  Report Type: Spontaneous
  Country: US (occurrence: US)
  Receive Date: 20170621
  Receipt Date: 20170621
  Transmission Date: 20170830
  Serious: Yes (Hospitalization, Disabling)
  Sender: FDA-Public Use
  Company Number: None

PATIENT
  Age: 37 Year
  Sex: Female
  Weight: 54 kg

DRUGS (1)
  1. KLONOPIN [Suspect]
     Active Substance: CLONAZEPAM
     Indication: PANIC ATTACK
     Dosage: ?          QUANTITY:1 TABLET(S);?
     Route: 048
     Dates: start: 20070601, end: 20120301

REACTIONS (21)
  - Depression [None]
  - Exercise tolerance decreased [None]
  - Nightmare [None]
  - General physical health deterioration [None]
  - Drug withdrawal syndrome [None]
  - Arthralgia [None]
  - Sleep disorder [None]
  - Gastric disorder [None]
  - Confusional state [None]
  - Depersonalisation/derealisation disorder [None]
  - Loss of personal independence in daily activities [None]
  - Suicidal ideation [None]
  - Myalgia [None]
  - Anxiety [None]
  - Fear [None]
  - Derealisation [None]
  - Memory impairment [None]
  - Cognitive disorder [None]
  - Neuralgia [None]
  - Feeling abnormal [None]
  - Impaired self-care [None]

NARRATIVE: CASE EVENT DATE: 20070601
